FAERS Safety Report 5288597-3 (Version None)
Quarter: 2007Q2

REPORT INFORMATION
  Report Type: 
  Country: None (occurrence: None)
  Receive Date: 20070405
  Receipt Date: 20070328
  Transmission Date: 20071010
  Serious: Yes (Hospitalization)
  Sender: FDA-Public Use
  Company Number: US-ABBOTT-07P-163-0363352-00

PATIENT
  Sex: Male
  Weight: 70.824 kg

DRUGS (8)
  1. DEPAKOTE [Suspect]
     Indication: CONVULSION
     Route: 048
     Dates: start: 19970101, end: 20070301
  2. DEPAKOTE [Suspect]
     Route: 048
     Dates: start: 20070301
  3. TOPIRAMATE [Concomitant]
     Indication: CONVULSION
     Route: 048
  4. PRIMIDONE [Concomitant]
     Indication: CONVULSION
     Route: 048
  5. METOPROLOL SUCCINATE [Concomitant]
     Indication: BICUSPID AORTIC VALVE
     Route: 048
  6. SINGULAIR [Concomitant]
     Indication: ASTHMA
     Route: 048
  7. FLOVENT IH [Concomitant]
     Indication: ASTHMA
     Route: 055
  8. ALBUTEROL IH [Concomitant]
     Indication: ASTHMA
     Route: 055

REACTIONS (5)
  - AMMONIA INCREASED [None]
  - DEHYDRATION [None]
  - INFLUENZA LIKE ILLNESS [None]
  - PNEUMONIA [None]
  - VOMITING [None]
